FAERS Safety Report 7587427-4 (Version None)
Quarter: 2011Q3

REPORT INFORMATION
  Report Type: 
  Country: None (occurrence: None)
  Receive Date: 20110704
  Receipt Date: 20110623
  Transmission Date: 20111222
  Serious: Yes (Hospitalization, Other)
  Sender: FDA-Public Use
  Company Number: US-BIOGENIDEC-2010BI043115

PATIENT
  Age: 30 Year
  Sex: Female

DRUGS (2)
  1. PRENATAL VITAMINS [Concomitant]
  2. TYSABRI [Suspect]
     Indication: MULTIPLE SCLEROSIS
     Route: 042
     Dates: start: 20070112, end: 20100720

REACTIONS (2)
  - BREECH PRESENTATION [None]
  - PREGNANCY [None]
